FAERS Safety Report 5066718-5 (Version None)
Quarter: 2006Q3

REPORT INFORMATION
  Report Type: 
  Country: None (occurrence: None)
  Receive Date: 20060728
  Receipt Date: 20060713
  Transmission Date: 20061208
  Serious: Yes (Other)
  Sender: FDA-Public Use
  Company Number: 2006S1006456

PATIENT
  Sex: Female

DRUGS (5)
  1. LORAZEPAM [Suspect]
  2. ADDERALL 10 [Suspect]
  3. DIAZEPAM [Concomitant]
  4. OPIOIDS [Suspect]
  5. HYDROCHLOROTHIAZIDE [Concomitant]

REACTIONS (1)
  - DEPENDENCE [None]
